FAERS Safety Report 5593335-0 (Version None)
Quarter: 2008Q1

REPORT INFORMATION
  Report Type: 
  Country: None (occurrence: None)
  Receive Date: 20080116
  Receipt Date: 20080109
  Transmission Date: 20080703
  Serious: Yes (Congenital Anomaly)
  Sender: FDA-Public Use
  Company Number: CA-ASTRAZENECA-2008UW00790

PATIENT
  Age: 33 Year
  Sex: Female

DRUGS (2)
  1. NEXIUM [Suspect]
     Indication: DYSPEPSIA
     Route: 048
  2. NEXIUM [Suspect]
     Route: 048
     Dates: start: 20071001

REACTIONS (3)
  - ABORTION [None]
  - CONGENITAL HAND MALFORMATION [None]
  - DRUG EXPOSURE DURING PREGNANCY [None]
